FAERS Safety Report 8481538-7 (Version None)
Quarter: 2012Q3

REPORT INFORMATION
  Report Type: 
  Country: None (occurrence: None)
  Receive Date: 20120702
  Receipt Date: 20120621
  Transmission Date: 20120928
  Serious: Yes (Hospitalization)
  Sender: FDA-Public Use
  Company Number: US-BAYER-2011-107979

PATIENT
  Age: 24 Year
  Sex: Female
  Weight: 86 kg

DRUGS (2)
  1. DROSPIRENONE AND ETHINYL ESTRADIOL [Suspect]
     Indication: POLYCYSTIC OVARIES
  2. YASMIN [Suspect]
     Indication: OVARIAN CYST

REACTIONS (6)
  - PULMONARY EMBOLISM [None]
  - ANHEDONIA [None]
  - PAIN [None]
  - DEEP VEIN THROMBOSIS [None]
  - INJURY [None]
  - ANXIETY [None]
